FAERS Safety Report 13736870 (Version 1)
Quarter: 2017Q3

REPORT INFORMATION
  Report Type: Spontaneous
  Country: US (occurrence: US)
  Receive Date: 20170710
  Receipt Date: 20170710
  Transmission Date: 20171127
  Serious: No
  Sender: FDA-Public Use
  Company Number: None

PATIENT
  Age: 38 Year
  Sex: Male
  Weight: 83.99 kg

DRUGS (4)
  1. MULTIVITAMIN [Concomitant]
     Active Substance: VITAMINS
  2. MIFEPRISTONE 600 MG [Suspect]
     Active Substance: MIFEPRISTONE
     Indication: ALCOHOLIC
     Route: 048
     Dates: start: 20170518, end: 20170522
  3. MIFEPRISTONE 1200 MG [Suspect]
     Active Substance: MIFEPRISTONE
     Indication: ALCOHOLIC
     Route: 048
     Dates: start: 20170518, end: 20170522
  4. XANAX [Concomitant]
     Active Substance: ALPRAZOLAM

REACTIONS (5)
  - Dehydration [None]
  - Binge drinking [None]
  - Excessive exercise [None]
  - Hypertension [None]
  - Headache [None]

NARRATIVE: CASE EVENT DATE: 20170522
